FAERS Safety Report 4685166-0 (Version None)
Quarter: 2005Q2

REPORT INFORMATION
  Report Type: 
  Country: None (occurrence: None)
  Receive Date: 20050608
  Receipt Date: 20050602
  Transmission Date: 20051028
  Serious: Yes (Death, Hospitalization)
  Sender: FDA-Public Use
  Company Number: 200515067GDDC

PATIENT
  Age: 74 Year
  Sex: Male

DRUGS (7)
  1. FRUSEMIDE [Suspect]
  2. AMIODARONE HYDROCHLORIDE [Suspect]
     Dates: start: 19960917
  3. BECLOMETHASONE DIPROPIONATE [Suspect]
  4. SLOW-K [Suspect]
  5. LANOXIN [Suspect]
  6. ISOSORBIDE MONONITRATE [Suspect]
  7. MOCLOBEMIDE [Suspect]

REACTIONS (6)
  - DYSPNOEA [None]
  - HAEMOPTYSIS [None]
  - LUNG INFILTRATION [None]
  - PNEUMONITIS [None]
  - PULMONARY ALVEOLAR HAEMORRHAGE [None]
  - RESPIRATORY FAILURE [None]
